FAERS Safety Report 17747029 (Version 1)
Quarter: 2020Q2

REPORT INFORMATION
  Report Type: Spontaneous
  Country: IT (occurrence: IT)
  Receive Date: 20200505
  Receipt Date: 20200505
  Transmission Date: 20200714
  Serious: Yes (Other)
  Sender: FDA-Public Use
  Company Number: IT-AMGEN-ITANI2020069883

PATIENT
  Age: 43 Year
  Sex: Female
  Weight: 60 kg

DRUGS (1)
  1. AMGEVITA [Suspect]
     Active Substance: ADALIMUMAB
     Indication: ANKYLOSING SPONDYLITIS
     Dosage: 40 MILLIGRAM, CYCLICAL
     Route: 065
     Dates: start: 20200101, end: 20200301

REACTIONS (2)
  - Uveitis [Unknown]
  - Product substitution issue [Unknown]

NARRATIVE: CASE EVENT DATE: 20200301
